FAERS Safety Report 25764422 (Version 1)
Quarter: 2025Q3

REPORT INFORMATION
  Report Type: Spontaneous
  Country: US (occurrence: US)
  Receive Date: 20250905
  Receipt Date: 20250905
  Transmission Date: 20251020
  Serious: No
  Sender: DOMPE FARMACEUTICI
  Company Number: US-FARMAPROD-202502-0451

PATIENT
  Age: 81 Year
  Sex: Female
  Weight: 72.12 kg

DRUGS (15)
  1. OXERVATE [Suspect]
     Active Substance: CENEGERMIN-BKBJ
     Indication: Neurotrophic keratopathy
     Route: 047
     Dates: start: 20250205
  2. OXERVATE [Suspect]
     Active Substance: CENEGERMIN-BKBJ
  3. PREDNISOLONE ACETATE [Concomitant]
     Active Substance: PREDNISOLONE ACETATE
  4. ATORVASTATIN CALCIUM [Concomitant]
     Active Substance: ATORVASTATIN CALCIUM
  5. GABAPENTIN [Concomitant]
     Active Substance: GABAPENTIN
  6. METFORMIN HYDROCHLORIDE [Concomitant]
     Active Substance: METFORMIN HYDROCHLORIDE
  7. JANUVIA [Concomitant]
     Active Substance: SITAGLIPTIN PHOSPHATE
  8. RESTASIS [Concomitant]
     Active Substance: CYCLOSPORINE
  9. JARDIANCE [Concomitant]
     Active Substance: EMPAGLIFLOZIN
  10. FAMOTIDINE [Concomitant]
     Active Substance: FAMOTIDINE
  11. CICLOPIROX [Concomitant]
     Active Substance: CICLOPIROX
  12. PENTOXIFYLLINE [Concomitant]
     Active Substance: PENTOXIFYLLINE
  13. LISINOPRIL [Concomitant]
     Active Substance: LISINOPRIL
  14. CALCIUM 600-VIT D3 [Concomitant]
  15. DICLOFENAC SODIUM [Concomitant]
     Active Substance: DICLOFENAC SODIUM

REACTIONS (7)
  - Product dose omission issue [Unknown]
  - Lacrimation increased [Not Recovered/Not Resolved]
  - Eye pain [Unknown]
  - Vision blurred [Recovered/Resolved]
  - Dizziness [Unknown]
  - Eye inflammation [Unknown]
  - Ocular hyperaemia [Unknown]

NARRATIVE: CASE EVENT DATE: 20250208
